FAERS Safety Report 14185716 (Version 1)
Quarter: 2017Q4

REPORT INFORMATION
  Report Type: Spontaneous
  Country: US (occurrence: US)
  Receive Date: 20171114
  Receipt Date: 20171114
  Transmission Date: 20180321
  Serious: Yes (Other)
  Sender: FDA-Public Use
  Company Number: US-PFIZER INC-2017479969

PATIENT
  Age: 66 Year
  Sex: Female

DRUGS (2)
  1. IBRANCE [Suspect]
     Active Substance: PALBOCICLIB
     Dosage: 125 MG, UNK
  2. EXEMESTANE. [Suspect]
     Active Substance: EXEMESTANE
     Dosage: 25 MG, 1X/DAY

REACTIONS (8)
  - Constipation [Unknown]
  - Stomatitis [Unknown]
  - Dizziness [Unknown]
  - Pulmonary oedema [Unknown]
  - Headache [Unknown]
  - Functional gastrointestinal disorder [Unknown]
  - Flatulence [Unknown]
  - Diarrhoea [Unknown]
